FAERS Safety Report 6470608-0 (Version None)
Quarter: 2009Q4

REPORT INFORMATION
  Report Type: 
  Country: None (occurrence: None)
  Receive Date: 20091203
  Receipt Date: 20090129
  Transmission Date: 20100525
  Serious: No
  Sender: FDA-Public Use
  Company Number: US-ABBOTT-09P-163-0500896-00

PATIENT
  Sex: Female
  Weight: 102.15 kg

DRUGS (1)
  1. MERIDIA [Suspect]
     Indication: WEIGHT CONTROL
     Route: 048
     Dates: start: 20090115, end: 20090124

REACTIONS (4)
  - CONSTIPATION [None]
  - HEART RATE INCREASED [None]
  - HEART RATE IRREGULAR [None]
  - URTICARIA [None]
